FAERS Safety Report 7750494-9 (Version None)
Quarter: 2011Q3

REPORT INFORMATION
  Report Type: 
  Country: None (occurrence: None)
  Receive Date: 20110914
  Receipt Date: 20110908
  Transmission Date: 20111222
  Serious: Yes (Death, Hospitalization, Other)
  Sender: FDA-Public Use
  Company Number: US-PFIZER INC-2011177202

PATIENT
  Sex: Female

DRUGS (15)
  1. PREDNISONE [Concomitant]
     Dosage: 40 MG, 1X/DAY
  2. GABAPENTIN [Concomitant]
     Dosage: 400 MG, 2X/DAY
  3. PROTONIX [Concomitant]
     Dosage: 40 MG, 1X/DAY
  4. BACTRIM [Concomitant]
     Dosage: UNK, 1X/DAY
  5. EFFEXOR [Concomitant]
     Dosage: 75 MG, 1X/DAY
  6. FLONASE [Concomitant]
     Dosage: UNK, 1X/DAY
  7. DOCUSATE [Concomitant]
     Dosage: 100 MG, 1X/DAY
  8. OXYCODONE [Concomitant]
     Dosage: UNK, AS NEEDED
  9. WARFARIN [Concomitant]
     Dosage: UNK
  10. METOPROLOL [Concomitant]
     Dosage: 25 MG, 1X/DAY
  11. METFORMIN [Concomitant]
     Dosage: 500 MG, 2X/DAY
  12. PROVENTIL [Concomitant]
     Dosage: 2.5 MG, AS NEEDED
  13. REVATIO [Suspect]
     Indication: PULMONARY HYPERTENSION
     Dosage: 50 MG, 3X/DAY
     Dates: start: 20090101
  14. ADVAIR DISKUS 100/50 [Concomitant]
     Dosage: UNK, 2X/DAY
  15. LASIX [Concomitant]
     Dosage: 20 MG, 1X/DAY

REACTIONS (4)
  - HEAD INJURY [None]
  - CHRONIC OBSTRUCTIVE PULMONARY DISEASE [None]
  - FALL [None]
  - DEATH [None]
